FAERS Safety Report 17687350 (Version 10)
Quarter: 2021Q2

REPORT INFORMATION
  Report Type: Report from Study
  Country: US (occurrence: US)
  Receive Date: 20200421
  Receipt Date: 20210416
  Transmission Date: 20210716
  Serious: No
  Sender: FDA-Public Use
  Company Number: NVSC2020US104849

PATIENT
  Age: 66 Year
  Sex: Male

DRUGS (3)
  1. ENTRESTO [Suspect]
     Active Substance: SACUBITRIL\VALSARTAN
     Indication: ARRHYTHMIA
     Dosage: 50 MG, BID (24.26 MG)
     Route: 048
     Dates: start: 202003
  2. ENTRESTO [Suspect]
     Active Substance: SACUBITRIL\VALSARTAN
     Dosage: 100 MG, BID (49.51MG)
     Route: 048
     Dates: start: 202004, end: 20200501
  3. ENTRESTO [Suspect]
     Active Substance: SACUBITRIL\VALSARTAN
     Indication: CARDIAC FAILURE CHRONIC
     Dosage: 50 MG, BID (24.26 MG)
     Route: 048
     Dates: start: 202004, end: 20200501

REACTIONS (20)
  - Muscle spasms [Recovered/Resolved]
  - Blood pressure increased [Unknown]
  - Abdominal discomfort [Recovering/Resolving]
  - Somnolence [Recovering/Resolving]
  - Pain [Unknown]
  - Fatigue [Unknown]
  - Wrong technique in product usage process [Unknown]
  - Dyspnoea [Unknown]
  - Blood pressure diastolic [Recovering/Resolving]
  - Hypoaesthesia [Unknown]
  - Asthenia [Recovering/Resolving]
  - Affective disorder [Recovering/Resolving]
  - Gout [Unknown]
  - Blood pressure decreased [Unknown]
  - Heart rate increased [Unknown]
  - Oedema [Unknown]
  - Weight decreased [Recovered/Resolved]
  - Weight increased [Unknown]
  - Nervousness [Recovering/Resolving]
  - Dizziness [Unknown]

NARRATIVE: CASE EVENT DATE: 202003
